FAERS Safety Report 7489283-1 (Version None)
Quarter: 2011Q2

REPORT INFORMATION
  Report Type: 
  Country: None (occurrence: None)
  Receive Date: 20110518
  Receipt Date: 20110516
  Transmission Date: 20111010
  Serious: Yes (Hospitalization, Other)
  Sender: FDA-Public Use
  Company Number: US-AMGEN-USASP2011020722

PATIENT
  Age: 90 Year
  Sex: Male
  Weight: 65.76 kg

DRUGS (6)
  1. METOPROLOL TARTRATE [Concomitant]
     Dosage: 25 MG, QD
     Route: 048
     Dates: end: 20110418
  2. IMDUR [Concomitant]
     Dosage: 300 MG, QD
     Route: 048
  3. NITROGLYCERIN [Concomitant]
     Dosage: 0.4 MG, PRN
     Route: 060
  4. LOPID [Concomitant]
     Dosage: 600 MG, BID
     Route: 048
  5. NPLATE [Suspect]
     Indication: IDIOPATHIC THROMBOCYTOPENIC PURPURA
     Dosage: 350 A?G, QWK
     Route: 058
     Dates: start: 20100715, end: 20110310
  6. ALLOPURINOL [Concomitant]
     Dosage: 100 MG, QD
     Route: 048

REACTIONS (5)
  - PULMONARY EMBOLISM [None]
  - SICK SINUS SYNDROME [None]
  - BRADYCARDIA [None]
  - DEEP VEIN THROMBOSIS [None]
  - PLATELET COUNT DECREASED [None]
